FAERS Safety Report 16834971 (Version 1)
Quarter: 2019Q3

REPORT INFORMATION
  Report Type: Spontaneous
  Country: US (occurrence: US)
  Receive Date: 20190920
  Receipt Date: 20190920
  Transmission Date: 20191005
  Serious: No
  Sender: FDA-Public Use
  Company Number: US-AVEDRO-AVE-2019-0137-AE

PATIENT
  Age: 20 Year
  Sex: Male

DRUGS (2)
  1. PHOTREXA VISCOUS [Suspect]
     Active Substance: RIBOFLAVIN 5^-PHOSPHATE SODIUM
     Indication: PRODUCT USED FOR UNKNOWN INDICATION
     Route: 047
     Dates: start: 20170816, end: 20170816
  2. KXL SYSTEM [Suspect]
     Active Substance: DEVICE
     Indication: PRODUCT USED FOR UNKNOWN INDICATION
     Route: 047
     Dates: start: 20170816, end: 20170816

REACTIONS (3)
  - Infection [Unknown]
  - Streptococcus test positive [Unknown]
  - Keratitis [Unknown]

NARRATIVE: CASE EVENT DATE: 20170817
